FAERS Safety Report 7540506-X (Version None)
Quarter: 2011Q2

REPORT INFORMATION
  Report Type: 
  Country: None (occurrence: None)
  Receive Date: 20110610
  Receipt Date: 20110602
  Transmission Date: 20111010
  Serious: Yes (Hospitalization)
  Sender: FDA-Public Use
  Company Number: A0930061A

PATIENT
  Sex: Female

DRUGS (5)
  1. LIPITOR [Concomitant]
  2. AVANDIA [Suspect]
     Dosage: 4MG PER DAY
     Route: 048
     Dates: start: 20070413, end: 20090401
  3. ASCORBIC ACID [Concomitant]
  4. NITROGLYCERIN [Concomitant]
  5. SYNTHROID [Concomitant]

REACTIONS (2)
  - CARDIAC FAILURE CONGESTIVE [None]
  - MYOCARDIAL INFARCTION [None]
